FAERS Safety Report 7232398-3 (Version None)
Quarter: 2011Q1

REPORT INFORMATION
  Report Type: 
  Country: None (occurrence: None)
  Receive Date: 20110119
  Receipt Date: 20110111
  Transmission Date: 20110831
  Serious: Yes (Hospitalization)
  Sender: FDA-Public Use
  Company Number: US-ASTELLAS-2011US000144

PATIENT

DRUGS (2)
  1. AMEVIVE [Suspect]
     Dosage: 15 MG, WEEKLY
     Route: 058
     Dates: start: 20100729, end: 20101209
  2. AMEVIVE [Suspect]
     Indication: RENAL TRANSPLANT
     Dosage: 7.5 MG, TOTAL DOSE
     Route: 042
     Dates: start: 20100722, end: 20100124

REACTIONS (1)
  - KIDNEY TRANSPLANT REJECTION [None]
